FAERS Safety Report 6502087-9 (Version None)
Quarter: 2009Q4

REPORT INFORMATION
  Report Type: 
  Country: None (occurrence: None)
  Receive Date: 20091214
  Receipt Date: 20091130
  Transmission Date: 20100525
  Serious: Yes (Other)
  Sender: FDA-Public Use
  Company Number: 2008EU002498

PATIENT
  Age: 60 Year
  Sex: Male

DRUGS (3)
  1. PROGRAF [Suspect]
     Indication: LIVER TRANSPLANT
     Dosage: 0.5 MG, BID, ORAL
     Route: 048
     Dates: end: 20080701
  2. TACROLIMUS [Suspect]
     Indication: LIVER TRANSPLANT
     Dosage: 0.5 MG, QOD, ORAL
     Route: 048
     Dates: start: 20080701
  3. MYCOPHENOLATE MOFETIL [Concomitant]

REACTIONS (5)
  - CELL DEATH [None]
  - GAMMA-GLUTAMYLTRANSFERASE INCREASED [None]
  - LEUKOPENIA [None]
  - MALIGNANT MELANOMA [None]
  - TRANSPLANT REJECTION [None]
